FAERS Safety Report 16112287 (Version 1)
Quarter: 2019Q2

REPORT INFORMATION
  Report Type: Spontaneous
  Country: US (occurrence: US)
  Receive Date: 20190324
  Receipt Date: 20190324
  Transmission Date: 20190711
  Serious: Yes (Hospitalization, Disabling)
  Sender: FDA-Public Use
  Company Number: None

PATIENT
  Age: 48 Year
  Sex: Female
  Weight: 72 kg

DRUGS (3)
  1. PROZAC [Concomitant]
     Active Substance: FLUOXETINE HYDROCHLORIDE
  2. REMERON [Concomitant]
     Active Substance: MIRTAZAPINE
  3. DIAZEPAM. [Suspect]
     Active Substance: DIAZEPAM
     Indication: INSOMNIA
     Route: 048
     Dates: start: 20180901

REACTIONS (25)
  - Anxiety [None]
  - Suicidal ideation [None]
  - Drug withdrawal syndrome [None]
  - Intrusive thoughts [None]
  - Tooth fracture [None]
  - Formication [None]
  - Nightmare [None]
  - Hypoaesthesia [None]
  - Bruxism [None]
  - Eye pain [None]
  - Alopecia [None]
  - Ear congestion [None]
  - Abdominal pain upper [None]
  - Weight decreased [None]
  - Tension headache [None]
  - Hyperhidrosis [None]
  - Ear discomfort [None]
  - Insomnia [None]
  - Amnesia [None]
  - Paranoia [None]
  - Urinary tract infection [None]
  - Agitation [None]
  - Depression [None]
  - Hyperacusis [None]
  - Musculoskeletal stiffness [None]

NARRATIVE: CASE EVENT DATE: 20180911
